FAERS Safety Report 7238348-8 (Version None)
Quarter: 2011Q1

REPORT INFORMATION
  Report Type: 
  Country: None (occurrence: None)
  Receive Date: 20110121
  Receipt Date: 20110114
  Transmission Date: 20110831
  Serious: Yes (Other)
  Sender: FDA-Public Use
  Company Number: TN-BRISTOL-MYERS SQUIBB COMPANY-15482508

PATIENT
  Age: 35 Year
  Sex: Female

DRUGS (4)
  1. METHOTREXATE [Interacting]
     Indication: ACUTE LYMPHOCYTIC LEUKAEMIA
  2. AMPHOTERICIN B [Suspect]
     Indication: FUNGAL INFECTION
     Dosage: STARTED AS 0.5MG/KG AND DOSE INCREASED TO 1MG/KG
     Dates: start: 20090215
  3. SODIUM BICARBONATE [Concomitant]
     Indication: FLUID REPLACEMENT
     Dosage: 1 DF = 0.9% FLUIDS
  4. FOLINIC ACID [Concomitant]

REACTIONS (3)
  - DRUG INTERACTION [None]
  - DRUG LEVEL INCREASED [None]
  - RENAL IMPAIRMENT [None]
